FAERS Safety Report 5988154-7 (Version None)
Quarter: 2008Q4

REPORT INFORMATION
  Report Type: 
  Country: None (occurrence: None)
  Receive Date: 20081208
  Receipt Date: 20081208
  Transmission Date: 20090506
  Serious: Yes (Other)
  Sender: FDA-Public Use
  Company Number: None

PATIENT
  Sex: Female
  Weight: 94.7 kg

DRUGS (1)
  1. VINORELBINE [Suspect]
     Indication: CHEMOTHERAPY
     Dosage: IV
     Route: 042
     Dates: start: 20081112, end: 20081112

REACTIONS (6)
  - INFUSION SITE ERYTHEMA [None]
  - INFUSION SITE EXFOLIATION [None]
  - INFUSION SITE PARAESTHESIA [None]
  - INFUSION SITE PRURITUS [None]
  - INFUSION SITE REACTION [None]
  - INFUSION SITE VESICLES [None]
